FAERS Safety Report 17203961 (Version 1)
Quarter: 2019Q4

REPORT INFORMATION
  Report Type: Spontaneous
  Country: CN (occurrence: CN)
  Receive Date: 20191226
  Receipt Date: 20191226
  Transmission Date: 20200122
  Serious: No
  Sender: FDA-Public Use
  Company Number: CN-B.BRAUN MEDICAL INC.-2078206

PATIENT
  Age: 41 Year
  Sex: Female
  Weight: 48 kg

DRUGS (1)
  1. HESPAN [Suspect]
     Active Substance: HETASTARCH\SODIUM CHLORIDE
     Indication: PROPHYLAXIS OF HYPOVOLAEMIC SHOCK
     Route: 041
     Dates: start: 20191125, end: 20191125

REACTIONS (1)
  - Rash [Recovered/Resolved]

NARRATIVE: CASE EVENT DATE: 20191125
